FAERS Safety Report 4717675-X (Version None)
Quarter: 2005Q3

REPORT INFORMATION
  Report Type: 
  Country: None (occurrence: None)
  Receive Date: 20050715
  Receipt Date: 20050705
  Transmission Date: 20060218
  Serious: Yes (Hospitalization)
  Sender: FDA-Public Use
  Company Number: 230133M05USA

PATIENT
  Age: 69 Year
  Sex: Female

DRUGS (1)
  1. REBIF [Suspect]
     Indication: MULTIPLE SCLEROSIS
     Dosage: 44 MCG, 3 IN 1 WEEKS, SUBCUTANEOUS
     Route: 058
     Dates: start: 20050228, end: 20050501

REACTIONS (4)
  - HEART RATE DECREASED [None]
  - RESPIRATORY DISORDER [None]
  - SEPSIS [None]
  - URINARY TRACT INFECTION [None]
